FAERS Safety Report 5281078-2 (Version None)
Quarter: 2007Q1

REPORT INFORMATION
  Report Type: 
  Country: None (occurrence: None)
  Receive Date: 20070323
  Receipt Date: 20070315
  Transmission Date: 20070707
  Serious: Yes (Other)
  Sender: FDA-Public Use
  Company Number: 111514ISR

PATIENT
  Age: 38 Month
  Sex: Male

DRUGS (10)
  1. ATENOLOL [Suspect]
     Indication: HYPERTENSION
  2. DOXAZOSIN MESYLATE [Suspect]
  3. ACETYLSALICYLIC ACID SRT [Concomitant]
  4. ATORVASTATIN CALCIUM [Concomitant]
  5. MYCOPHENOLATE MOFETIL [Concomitant]
  6. CYCLOSPORINE [Concomitant]
  7. ISONIAZID [Concomitant]
  8. LAMIVUDINE [Concomitant]
  9. PERINDOPRIL ERBUMINE [Concomitant]
  10. PYRIDOXINE HCL [Concomitant]

REACTIONS (1)
  - SPERMATOZOA PROGRESSIVE MOTILITY DECREASED [None]
